FAERS Safety Report 9631236 (Version 1)
Quarter: 2013Q4

REPORT INFORMATION
  Report Type: Spontaneous
  Country: US (occurrence: None)
  Receive Date: 20131016
  Receipt Date: 20131016
  Transmission Date: 20140711
  Serious: Yes (Death, Hospitalization)
  Sender: FDA-Public Use
  Company Number: None

PATIENT
  Age: 64 Year
  Sex: Male
  Weight: 129.28 kg

DRUGS (1)
  1. METFORMIN [Suspect]
     Indication: DIABETES MELLITUS
     Dosage: 1 TAB TAKEN BY MOUTH
     Route: 048
     Dates: start: 20130604, end: 20130617

REACTIONS (2)
  - Renal failure acute [None]
  - Lactic acidosis [None]
